FAERS Safety Report 19806544 (Version 1)
Quarter: 2021Q3

REPORT INFORMATION
  Report Type: Spontaneous
  Country: IL (occurrence: IL)
  Receive Date: 20210908
  Receipt Date: 20210908
  Transmission Date: 20211014
  Serious: Yes (Hospitalization, Other)
  Sender: FDA-Public Use
  Company Number: IL-TEVA-2021-IL-1950169

PATIENT
  Age: 22 Year
  Sex: Female

DRUGS (6)
  1. MOXYPEN [Suspect]
     Active Substance: AMOXICILLIN
     Indication: HELICOBACTER INFECTION
     Route: 065
  2. TINIDAZOLE. [Suspect]
     Active Substance: TINIDAZOLE
     Indication: HELICOBACTER INFECTION
     Route: 065
  3. CLARITHROMYCIN. [Suspect]
     Active Substance: CLARITHROMYCIN
     Indication: HELICOBACTER INFECTION
     Route: 065
  4. NEXIUM [Suspect]
     Active Substance: ESOMEPRAZOLE MAGNESIUM
     Indication: HELICOBACTER INFECTION
     Route: 065
  5. YASMIN [Concomitant]
     Active Substance: DROSPIRENONE\ETHINYL ESTRADIOL
     Indication: CONTRACEPTION
     Route: 065
  6. ARCOXIA [Suspect]
     Active Substance: ETORICOXIB
     Indication: ARTHRALGIA
     Route: 065

REACTIONS (11)
  - Urinary tract infection [Unknown]
  - Rash [Unknown]
  - Vasculitis [Unknown]
  - Bacterial infection [Unknown]
  - Mouth haemorrhage [Unknown]
  - Arthralgia [Unknown]
  - Synovitis [Unknown]
  - Abdominal tenderness [Unknown]
  - Lymphadenopathy [Unknown]
  - Viral infection [Unknown]
  - Sensitive skin [Unknown]
